FAERS Safety Report 20164577 (Version 1)
Quarter: 2021Q4

REPORT INFORMATION
  Report Type: Spontaneous
  Country: TR (occurrence: TR)
  Receive Date: 20211209
  Receipt Date: 20211209
  Transmission Date: 20220303
  Serious: Yes (Other)
  Sender: FDA-Public Use
  Company Number: TR-BAYER-2021A261568

PATIENT

DRUGS (1)
  1. EYLEA [Suspect]
     Active Substance: AFLIBERCEPT
     Indication: Diabetic retinal oedema
     Dosage: LEFT EYE, TOTAL EYLEA DOSE WAS NOT REPORTED, LAST EYLEA WAS RECEIVED 4 DAYS PRIOR THE EVENT
     Route: 031

REACTIONS (1)
  - Sudden hearing loss [Not Recovered/Not Resolved]
